FAERS Safety Report 18785137 (Version 1)
Quarter: 2021Q1

REPORT INFORMATION
  Report Type: Spontaneous
  Country: FR (occurrence: FR)
  Receive Date: 20210125
  Receipt Date: 20210125
  Transmission Date: 20210419
  Serious: Yes (Hospitalization)
  Sender: FDA-Public Use
  Company Number: FR-ALLERGAN-2103542US

PATIENT
  Sex: Female
  Weight: 70 kg

DRUGS (4)
  1. DOLIPRANE [Concomitant]
     Active Substance: ACETAMINOPHEN
  2. ESCITALOPRAM [Concomitant]
     Active Substance: ESCITALOPRAM OXALATE
  3. BOTOX [Suspect]
     Active Substance: ONABOTULINUMTOXINA
     Indication: TORTICOLLIS
     Dosage: 100 UNITS, SINGLE
     Route: 030
     Dates: start: 20200713, end: 20200713
  4. XANAX [Concomitant]
     Active Substance: ALPRAZOLAM

REACTIONS (1)
  - Acute coronary syndrome [Recovered/Resolved with Sequelae]

NARRATIVE: CASE EVENT DATE: 20200725
